FAERS Safety Report 17951021 (Version 1)
Quarter: 2020Q2

REPORT INFORMATION
  Report Type: Spontaneous
  Country: AU (occurrence: AU)
  Receive Date: 20200626
  Receipt Date: 20200626
  Transmission Date: 20200714
  Serious: Yes (Life-Threatening, Hospitalization, Other)
  Sender: FDA-Public Use
  Company Number: AU-NAPPMUNDI-GBR-2020-0077430

PATIENT
  Sex: Male

DRUGS (1)
  1. MORPHINE SULFATE. [Suspect]
     Active Substance: MORPHINE SULFATE
     Indication: BACK INJURY
     Dosage: UNK
     Route: 065

REACTIONS (9)
  - Speech disorder [Recovered/Resolved]
  - Asthenia [Recovered/Resolved]
  - Suicidal ideation [Recovered/Resolved]
  - Pneumonia [Recovered/Resolved]
  - Drug withdrawal syndrome [Recovered/Resolved]
  - Loss of personal independence in daily activities [Recovered/Resolved]
  - General physical health deterioration [Recovered/Resolved]
  - Depression [Recovered/Resolved]
  - Drug dependence [Recovered/Resolved]
